FAERS Safety Report 6745275-9 (Version None)
Quarter: 2010Q2

REPORT INFORMATION
  Report Type: 
  Country: None (occurrence: None)
  Receive Date: 20100528
  Receipt Date: 20100519
  Transmission Date: 20101027
  Serious: No
  Sender: FDA-Public Use
  Company Number: US-BIOGENIDEC-2010BI016933

PATIENT
  Sex: Female

DRUGS (1)
  1. TYSABRI [Suspect]
     Indication: MULTIPLE SCLEROSIS
     Route: 042
     Dates: start: 20080701

REACTIONS (6)
  - ARTHRITIS [None]
  - ASTHENIA [None]
  - BRONCHITIS [None]
  - DEPRESSION [None]
  - MEMORY IMPAIRMENT [None]
  - ULCER [None]
